FAERS Safety Report 7760253-9 (Version None)
Quarter: 2011Q3

REPORT INFORMATION
  Report Type: 
  Country: None (occurrence: None)
  Receive Date: 20110919
  Receipt Date: 20110824
  Transmission Date: 20111222
  Serious: Yes (Other)
  Sender: FDA-Public Use
  Company Number: JP-GLAXOSMITHKLINE-B0743084A

PATIENT
  Sex: Female

DRUGS (10)
  1. DEPAKENE [Concomitant]
     Dosage: 200MG PER DAY
     Route: 048
     Dates: start: 20110720, end: 20110726
  2. LAMICTAL [Suspect]
     Indication: BIPOLAR I DISORDER
     Route: 048
     Dates: start: 20110713, end: 20110824
  3. MAGMITT [Concomitant]
     Indication: CONSTIPATION
     Dosage: 1980MG PER DAY
     Route: 048
  4. SILECE [Concomitant]
     Indication: BIPOLAR I DISORDER
     Dosage: 2MG PER DAY
     Route: 048
  5. DEPAKENE [Concomitant]
     Dosage: 400MG PER DAY
     Route: 048
     Dates: start: 20110713, end: 20110719
  6. DEPAS [Concomitant]
     Indication: BIPOLAR I DISORDER
     Dosage: 1.5MG PER DAY
     Route: 048
  7. GOODMIN [Concomitant]
     Indication: BIPOLAR I DISORDER
     Dosage: .25MG PER DAY
     Route: 048
  8. DEPROMEL [Concomitant]
     Indication: BIPOLAR I DISORDER
     Dosage: 100MG PER DAY
     Route: 048
  9. PURSENNID [Concomitant]
     Indication: CONSTIPATION
     Dosage: 36MG PER DAY
     Route: 048
  10. DEPAKENE [Concomitant]
     Indication: BIPOLAR I DISORDER
     Dosage: 600MG PER DAY
     Route: 048
     Dates: end: 20110712

REACTIONS (6)
  - PYREXIA [None]
  - INFECTION [None]
  - HYPERVENTILATION [None]
  - RASH [None]
  - GENERALISED ERYTHEMA [None]
  - PRURITUS GENERALISED [None]
